FAERS Safety Report 16123487 (Version 2)
Quarter: 2019Q2

REPORT INFORMATION
  Report Type: Spontaneous
  Country: FR (occurrence: FR)
  Receive Date: 20190327
  Receipt Date: 20190415
  Transmission Date: 20190711
  Serious: Yes (Other)
  Sender: FDA-Public Use
  Company Number: FR-SA-2019SA077524

PATIENT
  Age: 75 Year
  Sex: Male
  Weight: 63 kg

DRUGS (6)
  1. MORPHINE SULFATE. [Suspect]
     Active Substance: MORPHINE SULFATE
     Indication: PAIN
     Dosage: 30 MG, QD
     Route: 048
  2. NIVOLUMAB [Suspect]
     Active Substance: NIVOLUMAB
     Indication: BRONCHIAL CARCINOMA
     Dosage: UNK UNK, UNK, VARIABLE
     Route: 041
     Dates: start: 20180202, end: 20190110
  3. PRIMPERAN [Suspect]
     Active Substance: METOCLOPRAMIDE HYDROCHLORIDE
     Indication: PROPHYLAXIS OF NAUSEA AND VOMITING
     Dosage: UNK UNK, UNK, UNKNOWN
     Route: 048
     Dates: start: 201901, end: 201901
  4. ONDANSETRON HYDROCHLORIDE. [Suspect]
     Active Substance: ONDANSETRON HYDROCHLORIDE
     Indication: PROPHYLAXIS OF NAUSEA AND VOMITING
     Dosage: UNK UNK, UNK, UNKNOWN
     Route: 048
     Dates: start: 201901, end: 201901
  5. TAXOTERE [Suspect]
     Active Substance: DOCETAXEL
     Indication: BRONCHIAL CARCINOMA
     Dosage: 134 MG, TOTAL
     Route: 041
     Dates: start: 20190124, end: 20190124
  6. MORPHINE SULFATE. [Suspect]
     Active Substance: MORPHINE SULFATE
     Indication: PAIN
     Dosage: UNK UNK, UNK
     Route: 048

REACTIONS (1)
  - Mixed liver injury [Recovered/Resolved]

NARRATIVE: CASE EVENT DATE: 20190213
